FAERS Safety Report 24317272 (Version 1)
Quarter: 2024Q3

REPORT INFORMATION
  Report Type: Spontaneous
  Country: US (occurrence: None)
  Receive Date: 20240912
  Receipt Date: 20240912
  Transmission Date: 20241017
  Serious: Yes (Death)
  Sender: Public
  Company Number: None

PATIENT
  Sex: Male

DRUGS (7)
  1. SEROSTIM [Suspect]
     Active Substance: SOMATROPIN
     Indication: HIV wasting syndrome
     Dosage: FREQUENCY : DAILY;?
     Route: 058
     Dates: start: 20240125
  2. AMLODIPINE BESYLATE [Concomitant]
  3. BIKTARVY [Concomitant]
  4. BOOST CHOCOLATE LIQUID [Concomitant]
  5. LASIX [Concomitant]
     Active Substance: FUROSEMIDE
  6. SEROSTIM [Concomitant]
  7. SILDENAFIL [Concomitant]
     Active Substance: SILDENAFIL

REACTIONS (1)
  - Death [None]
